FAERS Safety Report 12425803 (Version 2)
Quarter: 2016Q2

REPORT INFORMATION
  Report Type: Report from Study
  Country: US (occurrence: US)
  Receive Date: 20160601
  Receipt Date: 20160601
  Transmission Date: 20160815
  Serious: Yes (Hospitalization)
  Sender: FDA-Public Use
  Company Number: US-BAYER-2016-099168

PATIENT
  Age: 53 Year
  Sex: Male

DRUGS (2)
  1. STIVARGA [Suspect]
     Active Substance: REGORAFENIB
     Indication: RECTOSIGMOID CANCER
     Dosage: 160 MG, QD
     Route: 048
     Dates: start: 20160523, end: 20160525
  2. STIVARGA [Suspect]
     Active Substance: REGORAFENIB
     Indication: RECTOSIGMOID CANCER
     Dosage: 160 MG, QD
     Route: 048
     Dates: start: 20160503, end: 20160518

REACTIONS (4)
  - Haemoptysis [None]
  - Cough [None]
  - Pyrexia [None]
  - Blood pressure increased [None]

NARRATIVE: CASE EVENT DATE: 201605
